FAERS Safety Report 23265224 (Version 1)
Quarter: 2023Q4

REPORT INFORMATION
  Report Type: Spontaneous
  Country: US (occurrence: US)
  Receive Date: 20231206
  Receipt Date: 20231206
  Transmission Date: 20240110
  Serious: Yes (Hospitalization)
  Sender: FDA-Public Use
  Company Number: US-NOVOPROD-1146350

PATIENT
  Sex: Female

DRUGS (1)
  1. WEGOVY [Suspect]
     Active Substance: SEMAGLUTIDE
     Indication: Obesity
     Dosage: 2.4 MG, QW
     Route: 058
     Dates: start: 202309, end: 202310

REACTIONS (7)
  - Pancreas infection [Unknown]
  - Urinary tract infection [Unknown]
  - Kidney infection [Unknown]
  - Tremor [Unknown]
  - Pyrexia [Unknown]
  - Constipation [Unknown]
  - Alopecia [Unknown]

NARRATIVE: CASE EVENT DATE: 20230901
